FAERS Safety Report 21419156 (Version 1)
Quarter: 2022Q4

REPORT INFORMATION
  Report Type: Spontaneous
  Country: HR (occurrence: HR)
  Receive Date: 20221006
  Receipt Date: 20221006
  Transmission Date: 20230113
  Serious: Yes (Other)
  Sender: FDA-Public Use
  Company Number: None

PATIENT
  Age: 37 Year
  Sex: Female
  Weight: 65 kg

DRUGS (3)
  1. ESCITALOPRAM OXALATE [Suspect]
     Active Substance: ESCITALOPRAM OXALATE
     Indication: Product used for unknown indication
     Dosage: 42TBL.X10MG , UNIT DOSE : 420 MG , FREQUENCY TIME : 1 DAY , ADDITIONAL INFORMATION : ADR IS ADEQUATE
     Dates: start: 20220709, end: 20220709
  2. ALPRAZOLAM [Suspect]
     Active Substance: ALPRAZOLAM
     Indication: Product used for unknown indication
     Dosage: 20TBL.X0.25MG , UNIT DOSE : 5 MG , FREQUENCY TIME : 1 DAY
     Dates: start: 20220709, end: 20220709
  3. ALPRAZOLAM [Suspect]
     Active Substance: ALPRAZOLAM
     Indication: Product used for unknown indication
     Dosage: 30 TABLETS X 1 MG , UNIT DOSE : 30 MG , FREQUENCY TIME : 1 DAY , DURATION : 1 DAY
     Dates: start: 20220709, end: 20220709

REACTIONS (4)
  - Somnolence [Unknown]
  - Communication disorder [Unknown]
  - Drug abuse [Unknown]
  - Overdose [Unknown]

NARRATIVE: CASE EVENT DATE: 20220709
